FAERS Safety Report 15331267 (Version 2)
Quarter: 2018Q3

REPORT INFORMATION
  Report Type: Spontaneous
  Country: FR (occurrence: FR)
  Receive Date: 20180829
  Receipt Date: 20180905
  Transmission Date: 20181010
  Serious: Yes (Other)
  Sender: FDA-Public Use
  Company Number: PHHY2018FR080388

PATIENT
  Age: 75 Year
  Sex: Male

DRUGS (5)
  1. TROLEANDOMYCIN. [Suspect]
     Active Substance: TROLEANDOMYCIN
     Indication: LYMPHANGITIS
     Dosage: UNK
     Route: 065
  2. ZYLORIC [Concomitant]
     Active Substance: ALLOPURINOL
     Indication: HYPERURICAEMIA
     Dosage: 200 MG, QD
     Route: 065
  3. ALCAPHOR [Concomitant]
     Indication: HYPERURICAEMIA
     Route: 065
  4. RIFAMPICIN [Suspect]
     Active Substance: RIFAMPIN
     Indication: LEPROSY
     Dosage: 600 MG, QD
     Route: 065
     Dates: start: 197804
  5. INSULIN [Concomitant]
     Active Substance: INSULIN NOS
     Indication: DIABETES MELLITUS
     Dosage: 30 UNITS , QD
     Route: 065

REACTIONS (2)
  - Jaundice cholestatic [Recovered/Resolved]
  - Nausea [Recovered/Resolved]

NARRATIVE: CASE EVENT DATE: 19790120
